FAERS Safety Report 25171292 (Version 4)
Quarter: 2025Q2

REPORT INFORMATION
  Report Type: Spontaneous
  Country: NL (occurrence: NL)
  Receive Date: 20250408
  Receipt Date: 20250506
  Transmission Date: 20250717
  Serious: Yes (Life-Threatening, Hospitalization, Other)
  Sender: BOEHRINGER INGELHEIM
  Company Number: None

PATIENT
  Age: 69 Year
  Sex: Female
  Weight: 85 kg

DRUGS (20)
  1. EMPAGLIFLOZIN [Suspect]
     Active Substance: EMPAGLIFLOZIN
     Indication: Type 2 diabetes mellitus
     Dosage: 1 DD 1 [1 X PER DAG 1 STUK]
     Dates: start: 20241014, end: 20250110
  2. ALENDRONINEZUUR DRANK 0,7MG/ML / Brand name not specified [Concomitant]
     Indication: Product used for unknown indication
  3. ATORVASTATIN [Concomitant]
     Active Substance: ATORVASTATIN
     Indication: Product used for unknown indication
  4. BECLOMETASON/FORMOTEROL AEROSOL 100/6UG/DO / BECLOMETASON/FORMOTEROL F [Concomitant]
     Indication: Product used for unknown indication
  5. CARBOMEER OOGGEL 3MG/G (CARBOMEER 974P) / DRY EYE GEL OOGGEL TUBE 10G [Concomitant]
     Indication: Product used for unknown indication
  6. CLOBETASOL ZALF 0,5MG/G / Brand name not specified [Concomitant]
     Indication: Product used for unknown indication
  7. HYPROMELLOSE OOGDRUPPELS  3,2MG/ML / Brand name not specified [Concomitant]
     Indication: Product used for unknown indication
  8. INFLUENZAVACCIN (NIET GESPECIFICEERD) / GRIEPVACCIN HUISARTS INENTINGS [Concomitant]
     Indication: Product used for unknown indication
  9. INSULINE ASPART INJVLST 100E/ML / Brand name not specified [Concomitant]
     Indication: Product used for unknown indication
  10. INSULINE GLARGINE 100E/ML INJVLST / ABASAGLAR INJVLST 100E/ML PEN 3ML [Concomitant]
     Indication: Product used for unknown indication
  11. LEVOCETIRIZINE [Concomitant]
     Active Substance: LEVOCETIRIZINE
     Indication: Product used for unknown indication
  12. METFORMINE TABLET   500MG / Brand name not specified [Concomitant]
     Indication: Product used for unknown indication
  13. PANTOPRAZOLE [Concomitant]
     Active Substance: PANTOPRAZOLE
     Indication: Product used for unknown indication
  14. PREDNISOLONE [Concomitant]
     Active Substance: PREDNISOLONE
     Indication: Product used for unknown indication
  15. TEMAZEPAM [Concomitant]
     Active Substance: TEMAZEPAM
     Indication: Product used for unknown indication
  16. NADROPARINE  INJVLST  9500IE/ML / FRAXIPARINE INJVLST 2850IE [Concomitant]
     Indication: Product used for unknown indication
  17. THIAMINE TABLET 100MG / Brand name not specified [Concomitant]
     Indication: Product used for unknown indication
  18. ESOMEPRAZOL PDR INJ/INFOPL 40MG / Brand name not specified [Concomitant]
     Indication: Product used for unknown indication
  19. URSODEOXYCHOLZUUR SUSP ORAAL 50MG/ML / URSOFALK SUSPENSIE 50MG/ML [Concomitant]
     Indication: Product used for unknown indication
  20. CLOBETASOL CREME  0,5MG/G / ECZORIA CREME 0,5MG/G [Concomitant]
     Indication: Product used for unknown indication

REACTIONS (1)
  - Drug reaction with eosinophilia and systemic symptoms [Recovering/Resolving]
